FAERS Safety Report 13519840 (Version 2)
Quarter: 2017Q4

REPORT INFORMATION
  Report Type: Report from Study
  Country: US (occurrence: US)
  Receive Date: 20170506
  Receipt Date: 20171108
  Transmission Date: 20180320
  Serious: No
  Sender: FDA-Public Use
  Company Number: PHEH2017US012998

PATIENT
  Sex: Male

DRUGS (3)
  1. JADENU [Suspect]
     Active Substance: DEFERASIROX
     Dosage: 180 MG, 1 TABLET
     Route: 048
  2. JADENU [Suspect]
     Active Substance: DEFERASIROX
     Indication: PRODUCT USED FOR UNKNOWN INDICATION
     Dosage: 360 MG, 4 TABLETS
     Route: 048
  3. JADENU [Suspect]
     Active Substance: DEFERASIROX
     Dosage: 90 MG, 1 TAB DAILY
     Route: 048

REACTIONS (1)
  - Serum ferritin decreased [Unknown]
